FAERS Safety Report 8936956 (Version 1)
Quarter: 2012Q4

REPORT INFORMATION
  Report Type: 
  Country: US (occurrence: US)
  Receive Date: 20121130
  Receipt Date: 20121130
  Transmission Date: 20130627
  Serious: Yes (Other)
  Sender: FDA-Public Use
  Company Number: US-ASTRAZENECA-2012SE89644

PATIENT
  Age: 50 Year
  Sex: Female
  Weight: 90.7 kg

DRUGS (5)
  1. FASLODEX [Suspect]
     Indication: BREAST CANCER
     Route: 030
     Dates: start: 201012
  2. FASLODEX [Suspect]
     Indication: METASTASES TO LUNG
     Route: 030
     Dates: start: 201012
  3. OXYCONTIN [Concomitant]
     Indication: PAIN
     Dosage: AS REQUIRED
     Route: 048
  4. EFFEXOR [Concomitant]
     Indication: HOT FLUSH
  5. EXTAVIA [Concomitant]
     Indication: NEOPLASM MALIGNANT
     Dosage: MONTHLY
     Route: 050

REACTIONS (6)
  - Metastases to bone [Not Recovered/Not Resolved]
  - Pollakiuria [Recovered/Resolved]
  - Urine odour abnormal [Recovered/Resolved]
  - Injection site swelling [Recovered/Resolved]
  - Injection site pruritus [Recovered/Resolved]
  - Off label use [Unknown]
